FAERS Safety Report 5908489-3 (Version None)
Quarter: 2008Q4

REPORT INFORMATION
  Report Type: 
  Country: None (occurrence: None)
  Receive Date: 20081006
  Receipt Date: 20080804
  Transmission Date: 20090506
  Serious: No
  Sender: FDA-Public Use
  Company Number: US-BAYER-200830804NA

PATIENT
  Sex: Female

DRUGS (1)
  1. OCELLA [Suspect]
     Indication: OFF LABEL USE
     Route: 048

REACTIONS (2)
  - OFF LABEL USE [None]
  - WITHDRAWAL BLEED [None]
